FAERS Safety Report 14091692 (Version 1)
Quarter: 2017Q4

REPORT INFORMATION
  Report Type: Spontaneous
  Country: NO (occurrence: NO)
  Receive Date: 20171016
  Receipt Date: 20171016
  Transmission Date: 20180321
  Serious: Yes (Other)
  Sender: FDA-Public Use
  Company Number: NO-AMGEN-NORSP2017154748

PATIENT
  Sex: Female

DRUGS (4)
  1. KYPROLIS [Suspect]
     Active Substance: CARFILZOMIB
     Dosage: 56 MG/M2, DAY 8 AND 9, CYCLE 1
     Route: 065
     Dates: start: 201709, end: 201709
  2. KYPROLIS [Suspect]
     Active Substance: CARFILZOMIB
     Indication: PRODUCT USED FOR UNKNOWN INDICATION
     Dosage: 20 MG/M2, DAY 1 AND 2, CYCLE 1
     Route: 065
     Dates: start: 20170828
  3. DEXAMETHASONE. [Concomitant]
     Active Substance: DEXAMETHASONE
     Dosage: UNK
     Dates: start: 20170828
  4. KYPROLIS [Suspect]
     Active Substance: CARFILZOMIB
     Dosage: HALF DOSE OF 56MG/M2
     Route: 065
     Dates: start: 2017

REACTIONS (2)
  - Brain natriuretic peptide increased [Unknown]
  - Cor pulmonale acute [Unknown]

NARRATIVE: CASE EVENT DATE: 2017
